FAERS Safety Report 5066514-9 (Version None)
Quarter: 2006Q3

REPORT INFORMATION
  Report Type: 
  Country: None (occurrence: None)
  Receive Date: 20060717
  Receipt Date: 20050208
  Transmission Date: 20061208
  Serious: Yes (Other)
  Sender: FDA-Public Use
  Company Number: 2005-02-1519

PATIENT
  Age: 80 Year
  Sex: Female
  Weight: 59 kg

DRUGS (17)
  1. INTEGRILIN [Suspect]
     Indication: PERCUTANEOUS CORONARY INTERVENTION
     Dosage: SEE IMAGE
     Route: 042
  2. HEPARIN [Suspect]
     Indication: PERCUTANEOUS CORONARY INTERVENTION
     Dosage: SEE IMAGE
  3. ASPIRIN [Suspect]
     Dosage: 325 MG QD
  4. CLOPIDOGREL [Suspect]
     Indication: PERCUTANEOUS CORONARY INTERVENTION
     Dosage: 75 MG QD
  5. FUROSEMIDE [Concomitant]
  6. ALLOPURINOL [Concomitant]
  7. COLCHICINE [Concomitant]
  8. ATORVASTATIN CALCIUM [Concomitant]
  9. NITRGLYCERIN TRANSDERMAL SYSTEM [Concomitant]
  10. METOPROLOL TARTRATE [Concomitant]
  11. AMLODIPINE [Concomitant]
  12. RAMIPRIL [Concomitant]
  13. GLYBURIDE [Concomitant]
  14. DOCUSATE SODIUM [Concomitant]
  15. RANITIDINE [Concomitant]
  16. ACETYLCYSTEINE [Concomitant]
  17. PLACEBO [Concomitant]

REACTIONS (5)
  - BLOOD PRESSURE DECREASED [None]
  - HAEMATOMA [None]
  - HAEMOGLOBIN DECREASED [None]
  - NAUSEA [None]
  - THROMBOCYTOPENIA [None]
